FAERS Safety Report 14833141 (Version 1)
Quarter: 2018Q2

REPORT INFORMATION
  Report Type: Spontaneous
  Country: US (occurrence: US)
  Receive Date: 20180412
  Receipt Date: 20180412
  Transmission Date: 20180711
  Serious: No
  Sender: FDA-Public Use
  Company Number: None

PATIENT
  Age: 64 Year
  Sex: Female
  Weight: 76.5 kg

DRUGS (1)
  1. AYR SALINE NASAL MIST [Suspect]
     Active Substance: SODIUM CHLORIDE
     Indication: NASAL CONGESTION
     Dosage: ?          QUANTITY:2 SPRAY(S);?
     Route: 045
     Dates: start: 20180412, end: 20180412

REACTIONS (3)
  - Cough [None]
  - Dysphagia [None]
  - Retching [None]

NARRATIVE: CASE EVENT DATE: 20180412
